FAERS Safety Report 10104275 (Version 2)
Quarter: 2014Q2

REPORT INFORMATION
  Report Type: Other
  Country: US (occurrence: US)
  Receive Date: 20140424
  Receipt Date: 20140618
  Transmission Date: 20141212
  Serious: Yes (Hospitalization, Other)
  Sender: FDA-Public Use
  Company Number: US-GSKPPD-2014GSK001395

PATIENT
  Age: 63 Year
  Sex: Female

DRUGS (8)
  1. AVANDIA [Suspect]
     Indication: DIABETES MELLITUS
     Route: 048
     Dates: start: 20060213, end: 20070416
  2. AGGRENOX [Concomitant]
     Dosage: 25/200 MG
     Route: 048
     Dates: start: 200705
  3. ATENOLOL [Concomitant]
     Route: 048
  4. CLONIDINE [Concomitant]
     Route: 062
  5. LASIX [Concomitant]
     Route: 048
  6. ZESTRIL [Concomitant]
     Route: 048
  7. PROCARDIA XL [Concomitant]
     Route: 048
  8. ZOCOR [Concomitant]
     Route: 048

REACTIONS (1)
  - Cerebrovascular accident [Recovered/Resolved]
